FAERS Safety Report 6293784-1 (Version None)
Quarter: 2009Q3

REPORT INFORMATION
  Report Type: 
  Country: None (occurrence: None)
  Receive Date: 20090803
  Receipt Date: 20090723
  Transmission Date: 20100115
  Serious: Yes (Other)
  Sender: FDA-Public Use
  Company Number: DE-ASTRAZENECA-2009SE05748

PATIENT
  Age: 32 Year
  Sex: Female

DRUGS (2)
  1. SEROQUEL [Suspect]
     Route: 048
     Dates: start: 20090101, end: 20090101
  2. SEROQUEL [Suspect]
     Route: 048
     Dates: start: 20090101

REACTIONS (6)
  - BODY TEMPERATURE INCREASED [None]
  - NAUSEA [None]
  - SYNCOPE [None]
  - TRANSIENT ISCHAEMIC ATTACK [None]
  - VERTIGO [None]
  - VOMITING [None]
